FAERS Safety Report 24650007 (Version 1)
Quarter: 2024Q4

REPORT INFORMATION
  Report Type: Spontaneous
  Country: BR (occurrence: BR)
  Receive Date: 20241122
  Receipt Date: 20241122
  Transmission Date: 20250115
  Serious: Yes (Other)
  Sender: BAXTER
  Company Number: BR-BAXTER-2024BAX027700

PATIENT
  Age: 1 Year
  Sex: Male
  Weight: 11.06 kg

DRUGS (10)
  1. IRON [Suspect]
     Active Substance: IRON
     Indication: Mineral supplementation
     Dosage: 200 MG DILUTED IN 100 ML OF 0.9% SALINE SOLUTION IN A SINGLE DOSE ADMINISTERED IN 1 HOUR (110 ML/H)
     Route: 042
     Dates: start: 20240731, end: 20240731
  2. SODIUM CHLORIDE [Suspect]
     Active Substance: SODIUM CHLORIDE
     Indication: Medication dilution
     Dosage: 200 MG DILUTED IN 100 ML OF 0.9% SALINE SOLUTION IN A SINGLE DOSE ADMINISTERED IN 1 HOUR (110 ML/H)
     Route: 042
     Dates: start: 20240731, end: 20240731
  3. OMEPRAZOLE [Concomitant]
     Active Substance: OMEPRAZOLE
     Indication: Prophylaxis
     Dosage: 11 MG ONCE A DAY
     Route: 042
     Dates: start: 20240311
  4. BENZOYLMETRONIDAZOLE [Concomitant]
     Indication: Overgrowth bacterial
     Dosage: 4.4 ML EVERY 12 HOURS (20 MG/KG/DAY)
     Route: 048
     Dates: start: 20240610
  5. DOMPERIDONE [Concomitant]
     Active Substance: DOMPERIDONE
     Indication: Gastric hypomotility
     Dosage: 2.5 MG EVERY 8 HOURS
     Route: 048
     Dates: start: 20240620
  6. SIMETHICONE (DIMETHICONE) [Concomitant]
     Active Substance: DIMETHICONE
     Indication: Abdominal distension
     Dosage: 10 DROPS EVERY 8 HOURS
     Route: 048
  7. SULFAMETHOXAZOLE\TRIMETHOPRIM [Concomitant]
     Active Substance: SULFAMETHOXAZOLE\TRIMETHOPRIM
     Indication: Prophylaxis
     Dosage: 3.4 ML EVERY 12 HOURS
     Route: 048
     Dates: start: 20240620
  8. AZITHROMYCIN [Concomitant]
     Active Substance: AZITHROMYCIN
     Indication: Gastric hypomotility
     Dosage: 0.7 ML, ONCE A DAY
     Route: 048
     Dates: start: 20240701, end: 20240811
  9. VITAMIN D [Concomitant]
     Active Substance: VITAMIN D NOS
     Indication: Supplementation therapy
     Dosage: 1500 IU A DAY
     Route: 048
  10. LEVOCARNITINE [Concomitant]
     Active Substance: LEVOCARNITINE
     Indication: Supplementation therapy
     Dosage: 150 MG, ONCE A DAY
     Route: 048
     Dates: start: 20240620

REACTIONS (6)
  - Anaphylactic reaction [Recovered/Resolved]
  - Pallor [Unknown]
  - Cyanosis [Unknown]
  - Erythema [Unknown]
  - Macule [Unknown]
  - Rash [Unknown]

NARRATIVE: CASE EVENT DATE: 20240731
